FAERS Safety Report 8014092-4 (Version None)
Quarter: 2011Q4

REPORT INFORMATION
  Report Type: 
  Country: None (occurrence: None)
  Receive Date: 20111229
  Receipt Date: 20111219
  Transmission Date: 20120403
  Serious: Yes (Hospitalization)
  Sender: FDA-Public Use
  Company Number: CA-SHIRE-ALL1-2011-05072

PATIENT
  Sex: Male

DRUGS (2)
  1. IDURSULFASE [Suspect]
     Indication: MUCOPOLYSACCHARIDOSIS II
     Dosage: 14.3 MG, 1X/WEEK
     Route: 041
     Dates: start: 20080813
  2. UNSPECIFIED PRE MEDICATION [Concomitant]
     Indication: PREMEDICATION
     Dosage: UNK, UNKNOWN
     Route: 065

REACTIONS (2)
  - THROMBOSIS IN DEVICE [None]
  - LOWER RESPIRATORY TRACT INFECTION [None]
